FAERS Safety Report 7797075-9 (Version None)
Quarter: 2011Q4

REPORT INFORMATION
  Report Type: 
  Country: None (occurrence: None)
  Receive Date: 20111003
  Receipt Date: 20110920
  Transmission Date: 20120403
  Serious: Yes (Disabling)
  Sender: FDA-Public Use
  Company Number: 2011SP003013

PATIENT
  Age: 56 Year
  Sex: Female
  Weight: 79 kg

DRUGS (2)
  1. ANTIBIOTICS [Concomitant]
  2. OMNARIS [Suspect]
     Indication: SINUSITIS
     Dosage: 200 UG;QD;NASAL
     Route: 045
     Dates: start: 20101101

REACTIONS (3)
  - OFF LABEL USE [None]
  - ANOSMIA [None]
  - OLFACTORY NERVE DISORDER [None]
